FAERS Safety Report 19279875 (Version 1)
Quarter: 2021Q2

REPORT INFORMATION
  Report Type: Spontaneous
  Country: CA (occurrence: CA)
  Receive Date: 20210520
  Receipt Date: 20210520
  Transmission Date: 20210717
  Serious: Yes (Other)
  Sender: FDA-Public Use
  Company Number: CA-TEVA-2021-CA-1912984

PATIENT
  Sex: Female

DRUGS (3)
  1. MIRENA [Interacting]
     Active Substance: LEVONORGESTREL
     Route: 015
  2. AZITHROMYCIN ANHYDROUS. [Suspect]
     Active Substance: AZITHROMYCIN ANHYDROUS
     Route: 065
  3. ISOTRETINOIN. [Interacting]
     Active Substance: ISOTRETINOIN
     Route: 065

REACTIONS (3)
  - Bronchitis [Not Recovered/Not Resolved]
  - Maternal exposure during pregnancy [Not Recovered/Not Resolved]
  - Drug interaction [Not Recovered/Not Resolved]
